FAERS Safety Report 10785676 (Version 2)
Quarter: 2015Q1

REPORT INFORMATION
  Report Type: Spontaneous
  Country: US (occurrence: US)
  Receive Date: 20150211
  Receipt Date: 20150218
  Transmission Date: 20150721
  Serious: Yes (Death)
  Sender: FDA-Public Use
  Company Number: US-PFIZER INC-2015053742

PATIENT
  Age: 83 Year
  Sex: Female
  Weight: 54 kg

DRUGS (1)
  1. VFEND [Suspect]
     Active Substance: VORICONAZOLE
     Dosage: UNK

REACTIONS (1)
  - Leukaemia [Fatal]
